FAERS Safety Report 6743539-6 (Version None)
Quarter: 2010Q2

REPORT INFORMATION
  Report Type: 
  Country: None (occurrence: None)
  Receive Date: 20100527
  Receipt Date: 20090730
  Transmission Date: 20101027
  Serious: Yes (Other)
  Sender: FDA-Public Use
  Company Number: US-ROCHE-644422

PATIENT
  Age: 60 Year
  Sex: Male

DRUGS (6)
  1. CELLCEPT [Suspect]
     Route: 048
     Dates: start: 20070401
  2. ONDANSETRON [Concomitant]
  3. PREVACID [Concomitant]
  4. KEPPRA [Concomitant]
     Dosage: DRUG AS : KEPPRA
  5. MECLIZINE [Concomitant]
     Dosage: DRUG AS : MECLIZIDE
  6. PROGRAF [Concomitant]

REACTIONS (4)
  - CEREBRAL HAEMORRHAGE [None]
  - CONVULSION [None]
  - FALL [None]
  - VISUAL ACUITY REDUCED [None]
